FAERS Safety Report 6644045-X (Version None)
Quarter: 2010Q1

REPORT INFORMATION
  Report Type: 
  Country: None (occurrence: None)
  Receive Date: 20100311
  Receipt Date: 20100304
  Transmission Date: 20100710
  Serious: Yes (Death)
  Sender: FDA-Public Use
  Company Number: THYM-1001086

PATIENT
  Age: 62 Year
  Sex: Male

DRUGS (1)
  1. THYMOGLOBULINE (ANTI-THYMOCYTE GLOBULIN (RABBIT)) POWDER FOR SOLUTION [Suspect]
     Indication: LIVER TRANSPLANT
     Dosage: 16 MG, QD, INTRAVENOUS
     Route: 042
     Dates: start: 20090301, end: 20090304

REACTIONS (7)
  - CARDIOVASCULAR DISORDER [None]
  - EPSTEIN-BARR VIRUS ASSOCIATED LYMPHOPROLIFERATIVE DISORDER [None]
  - INFECTION [None]
  - INTESTINAL HAEMORRHAGE [None]
  - INTESTINAL PERFORATION [None]
  - LYMPHOMA [None]
  - MULTI-ORGAN FAILURE [None]
